FAERS Safety Report 13420047 (Version 2)
Quarter: 2017Q2

REPORT INFORMATION
  Report Type: Spontaneous
  Country: US (occurrence: US)
  Receive Date: 20170407
  Receipt Date: 20170425
  Transmission Date: 20170830
  Serious: No
  Sender: FDA-Public Use
  Company Number: US-JNJFOC-20170305321

PATIENT
  Age: 19 Year
  Sex: Male
  Weight: 91.7 kg

DRUGS (1)
  1. STELARA [Suspect]
     Active Substance: USTEKINUMAB
     Indication: CROHN^S DISEASE
     Route: 058
     Dates: start: 20161011

REACTIONS (3)
  - Needle issue [Unknown]
  - Underdose [Unknown]
  - Syringe issue [Unknown]

NARRATIVE: CASE EVENT DATE: 20170103
